FAERS Safety Report 7762180-X (Version None)
Quarter: 2011Q3

REPORT INFORMATION
  Report Type: 
  Country: None (occurrence: None)
  Receive Date: 20110920
  Receipt Date: 20110912
  Transmission Date: 20111222
  Serious: Yes (Other)
  Sender: FDA-Public Use
  Company Number: US-CELGENEUS-163-21880-10101300

PATIENT
  Sex: Male

DRUGS (2)
  1. REVLIMID [Suspect]
     Indication: MULTIPLE MYELOMA
     Dosage: 25 MILLIGRAM
     Route: 048
     Dates: start: 20070101
  2. ZOMETA [Concomitant]
     Route: 065

REACTIONS (6)
  - DIARRHOEA [None]
  - OSTEONECROSIS [None]
  - MOUTH HAEMORRHAGE [None]
  - OSTEOMYELITIS [None]
  - DEEP VEIN THROMBOSIS [None]
  - RASH [None]
